FAERS Safety Report 22258509 (Version 1)
Quarter: 2023Q2

REPORT INFORMATION
  Report Type: Spontaneous
  Country: US (occurrence: None)
  Receive Date: 20230425
  Receipt Date: 20230425
  Transmission Date: 20230722
  Serious: No
  Sender: FDA-Public Use
  Company Number: None

PATIENT
  Age: 71 Year
  Sex: Male
  Weight: 83.91 kg

DRUGS (17)
  1. ERLEADA [Suspect]
     Active Substance: APALUTAMIDE
     Indication: Prostate cancer
     Dosage: FREQUENCY : DAILY;?
     Route: 048
  2. ACETAMINOPHEN [Concomitant]
     Active Substance: ACETAMINOPHEN
  3. ADVIL [Concomitant]
     Active Substance: IBUPROFEN
  4. AMLODIPINE [Concomitant]
     Active Substance: AMLODIPINE BESYLATE
  5. ATORVASTATIN [Concomitant]
     Active Substance: ATORVASTATIN
  6. CARVEDILOL [Concomitant]
     Active Substance: CARVEDILOL
  7. CLINDAMYCIN [Concomitant]
     Active Substance: CLINDAMYCIN
  8. CLOTRIMAZOLE [Concomitant]
     Active Substance: CLOTRIMAZOLE
  9. EZETIMIBE [Concomitant]
     Active Substance: EZETIMIBE
  10. FINASTERIDE [Concomitant]
     Active Substance: FINASTERIDE
  11. GLIPIZIDE [Concomitant]
     Active Substance: GLIPIZIDE
  12. LORATADINE [Concomitant]
     Active Substance: LORATADINE
  13. MONOXIDIL [Concomitant]
  14. PANTOPRAZOLE [Concomitant]
     Active Substance: PANTOPRAZOLE
  15. POTASSIUM [Concomitant]
  16. TOUJEO [Concomitant]
     Active Substance: INSULIN GLARGINE
  17. VENLAFAXINE HCL ER [Concomitant]

REACTIONS (1)
  - Therapy cessation [None]
